FAERS Safety Report 9338707 (Version 1)
Quarter: 2013Q2

REPORT INFORMATION
  Report Type: Spontaneous
  Country: US (occurrence: None)
  Receive Date: 20130605
  Receipt Date: 20130605
  Transmission Date: 20140414
  Serious: No
  Sender: FDA-Public Use
  Company Number: None

PATIENT
  Age: 14 Year
  Sex: Female
  Weight: 64.41 kg

DRUGS (1)
  1. ABILIFY [Suspect]
     Dosage: 2.5, BID, PO
     Route: 048
     Dates: start: 20130522, end: 20130522

REACTIONS (5)
  - Headache [None]
  - Nausea [None]
  - Fall [None]
  - Vomiting [None]
  - Concussion [None]
